FAERS Safety Report 12548547 (Version 1)
Quarter: 2016Q3

REPORT INFORMATION
  Report Type: Spontaneous
  Country: US (occurrence: None)
  Receive Date: 20160711
  Receipt Date: 20160711
  Transmission Date: 20161109
  Serious: Yes (Disabling)
  Sender: FDA-Public Use
  Company Number: None

PATIENT
  Age: 53 Year
  Sex: Female
  Weight: 79.38 kg

DRUGS (3)
  1. MAGNESIUM [Concomitant]
     Active Substance: MAGNESIUM
  2. VITAMIN B COMPLEX [Concomitant]
     Active Substance: CYANOCOBALAMIN\DEXPANTHENOL\NIACINAMIDE\PYRIDOXINE HYDROCHLORIDE\RIBOFLAVIN 5^-PHOSPHATE SODIUM\THIAMINE HYDROCHLORIDE\VITAMIN B COMPLEX
  3. CHANTIX [Suspect]
     Active Substance: VARENICLINE TARTRATE
     Indication: SMOKING CESSATION THERAPY
     Dosage: 1 STARTING PACK
     Route: 048
     Dates: start: 20160615, end: 20160706

REACTIONS (22)
  - Weight decreased [None]
  - Vomiting [None]
  - Food aversion [None]
  - Insomnia [None]
  - Intentional product use issue [None]
  - Epistaxis [None]
  - Feeling jittery [None]
  - Ocular hyperaemia [None]
  - Rash [None]
  - Hot flush [None]
  - Arthralgia [None]
  - Scab [None]
  - Swelling [None]
  - Varicella [None]
  - Sunburn [None]
  - Parosmia [None]
  - Nervousness [None]
  - Skin burning sensation [None]
  - Decreased appetite [None]
  - Nausea [None]
  - Pruritus generalised [None]
  - Joint injury [None]

NARRATIVE: CASE EVENT DATE: 20160629
